FAERS Safety Report 5515854-5 (Version None)
Quarter: 2007Q4

REPORT INFORMATION
  Report Type: 
  Country: None (occurrence: None)
  Receive Date: 20071114
  Receipt Date: 20071109
  Transmission Date: 20080405
  Serious: Yes (Hospitalization)
  Sender: FDA-Public Use
  Company Number: GB-BRISTOL-MYERS SQUIBB COMPANY-13976469

PATIENT
  Age: 66 Year
  Sex: Male
  Weight: 76 kg

DRUGS (5)
  1. HYDROXYCARBAMIDE [Suspect]
     Indication: PSORIASIS
     Route: 048
     Dates: start: 20070826, end: 20070907
  2. ALENDRONIC ACID [Concomitant]
     Indication: PROPHYLAXIS
     Route: 048
     Dates: start: 20060101
  3. LANSOPRAZOLE [Concomitant]
     Indication: STOMACH DISCOMFORT
     Route: 048
     Dates: start: 20070101
  4. PARACETAMOL [Concomitant]
     Indication: PAIN
     Route: 048
  5. PREDNISOLONE [Concomitant]
     Indication: MYALGIA
     Route: 048
     Dates: start: 20040101

REACTIONS (4)
  - BONE MARROW FAILURE [None]
  - CHILLS [None]
  - DIARRHOEA [None]
  - HYPERHIDROSIS [None]
